FAERS Safety Report 6675076-1 (Version None)
Quarter: 2010Q2

REPORT INFORMATION
  Report Type: 
  Country: None (occurrence: None)
  Receive Date: 20100409
  Receipt Date: 20100405
  Transmission Date: 20101027
  Serious: Yes (Death, Other)
  Sender: FDA-Public Use
  Company Number: US-TEVA-230181USA

PATIENT
  Age: 61 Year
  Sex: Male

DRUGS (4)
  1. CARBOPLATIN [Suspect]
     Indication: BLADDER CANCER
     Dosage: AUC 5 ON DAY 1
  2. PACLITAXEL [Suspect]
     Indication: BLADDER CANCER
     Dosage: DAY 1
  3. TRASTUZUMAB [Suspect]
     Indication: BLADDER CANCER
     Dosage: 4MG/KG LOADING, FOLLOWED BY 2MG/KG DAY1,8,AND 15
  4. GEMCITABINE HCL [Suspect]
     Indication: BLADDER CANCER
     Dosage: DAY 1 AND 8

REACTIONS (1)
  - METASTASES TO MENINGES [None]
